FAERS Safety Report 13894031 (Version 2)
Quarter: 2017Q3

REPORT INFORMATION
  Report Type: Spontaneous
  Country: CN (occurrence: CN)
  Receive Date: 20170822
  Receipt Date: 20170823
  Transmission Date: 20171127
  Serious: Yes (Death, Other)
  Sender: FDA-Public Use
  Company Number: CN-ABBVIE-17P-035-2079400-00

PATIENT
  Age: 76 Year
  Sex: Male

DRUGS (2)
  1. LAMOTRIGINE. [Concomitant]
     Active Substance: LAMOTRIGINE
     Indication: PRODUCT USED FOR UNKNOWN INDICATION
  2. SODIUM VALPROATE/VALPROIC ACID [Suspect]
     Active Substance: VALPROATE SODIUM
     Indication: EPILEPSY
     Dosage: EXTENDED RELEASE
     Route: 048
     Dates: start: 20150122, end: 20150220

REACTIONS (5)
  - Hypoproteinaemia [Unknown]
  - Diabetes mellitus [Unknown]
  - Electrolyte imbalance [Unknown]
  - Toxic epidermal necrolysis [Fatal]
  - Anaemia [Unknown]

NARRATIVE: CASE EVENT DATE: 20150225
